FAERS Safety Report 8484658-6 (Version None)
Quarter: 2012Q3

REPORT INFORMATION
  Report Type: 
  Country: None (occurrence: None)
  Receive Date: 20120703
  Receipt Date: 20120626
  Transmission Date: 20120928
  Serious: Yes (Life-Threatening)
  Sender: FDA-Public Use
  Company Number: FR-SANOFI-AVENTIS-2012SA045407

PATIENT
  Age: 22 Year
  Sex: Female

DRUGS (19)
  1. ONDANSETRON HCL [Concomitant]
     Route: 042
     Dates: start: 20120312, end: 20120312
  2. LEVOTHYROXINE SODIUM [Concomitant]
  3. SOLU-MEDROL [Concomitant]
     Route: 042
     Dates: start: 20120312, end: 20120314
  4. PRIMPERAN TAB [Concomitant]
     Route: 042
     Dates: start: 20120312, end: 20120312
  5. EMEND [Concomitant]
     Route: 048
     Dates: start: 20120312, end: 20120312
  6. EMEND [Concomitant]
     Route: 048
     Dates: start: 20120313, end: 20120314
  7. MORPHINE SULFATE [Concomitant]
     Indication: PAIN
  8. CEFAZOLIN [Concomitant]
     Route: 042
     Dates: start: 20120315, end: 20120315
  9. XANAX [Concomitant]
     Route: 048
  10. PREDNISOLONE [Concomitant]
     Route: 048
     Dates: start: 20120312, end: 20120314
  11. TAXOTERE [Suspect]
     Indication: SQUAMOUS CELL CARCINOMA
     Route: 042
     Dates: start: 20120312, end: 20120312
  12. LYRICA [Concomitant]
     Route: 048
     Dates: start: 20120313, end: 20120316
  13. MORPHINE SULFATE [Concomitant]
     Route: 048
  14. SPASFON [Concomitant]
     Route: 042
     Dates: start: 20120317, end: 20120317
  15. FORLAX [Concomitant]
     Route: 048
     Dates: start: 20120312, end: 20120312
  16. CISPLATIN [Suspect]
     Indication: SQUAMOUS CELL CARCINOMA
     Route: 042
     Dates: start: 20120312, end: 20120312
  17. ACETAMINOPHEN [Concomitant]
     Indication: PAIN
     Route: 048
  18. ORAMORPH SR [Concomitant]
     Route: 048
     Dates: start: 20120315, end: 20120315
  19. FLUOROURACIL [Suspect]
     Indication: SQUAMOUS CELL CARCINOMA
     Route: 042
     Dates: start: 20120312, end: 20120417

REACTIONS (1)
  - POSTERIOR REVERSIBLE ENCEPHALOPATHY SYNDROME [None]
